FAERS Safety Report 7790580-0 (Version None)
Quarter: 2011Q3

REPORT INFORMATION
  Report Type: 
  Country: None (occurrence: None)
  Receive Date: 20110930
  Receipt Date: 20110927
  Transmission Date: 20111222
  Serious: Yes (Life-Threatening)
  Sender: FDA-Public Use
  Company Number: PHEH2011US01308

PATIENT
  Sex: Female

DRUGS (3)
  1. VIVELLE-DOT [Suspect]
     Dosage: 0.1 MG, TWICE A WEEK
     Route: 062
     Dates: end: 20100915
  2. MEDROXYPROGESTERONE [Suspect]
     Dosage: 10 MG, 7 PILLS MONTHLY
     Route: 048
  3. VIVELLE-DOT [Suspect]
     Dosage: 0.1 MG, ONCE A WEEK
     Route: 062

REACTIONS (6)
  - COORDINATION ABNORMAL [None]
  - FEELING ABNORMAL [None]
  - HYPERTENSION [None]
  - MENTAL IMPAIRMENT [None]
  - INSOMNIA [None]
  - INCORRECT DOSE ADMINISTERED [None]
